FAERS Safety Report 24156316 (Version 1)
Quarter: 2024Q3

REPORT INFORMATION
  Report Type: Spontaneous
  Country: US (occurrence: US)
  Receive Date: 20240731
  Receipt Date: 20240731
  Transmission Date: 20241016
  Serious: Yes (Other)
  Sender: CHEPLAPHARM
  Company Number: US-ROCHE-2872509

PATIENT
  Age: 58 Year
  Sex: Male
  Weight: 86.18 kg

DRUGS (4)
  1. CLONAZEPAM [Suspect]
     Active Substance: CLONAZEPAM
     Indication: Sleep disorder
     Route: 048
  2. OCREVUS [Suspect]
     Active Substance: OCRELIZUMAB
     Indication: Primary progressive multiple sclerosis
     Dosage: DATE OF TREATMENT: 13/DEC/2019
     Route: 042
     Dates: start: 2020, end: 2024
  3. NABUMETONE [Concomitant]
     Active Substance: NABUMETONE
     Indication: Musculoskeletal stiffness
     Route: 048
  4. TIZANIDINE [Concomitant]
     Active Substance: TIZANIDINE
     Indication: Musculoskeletal stiffness
     Dosage: 4 TO 6 TIMES PER DAY
     Route: 048

REACTIONS (4)
  - Muscle twitching [Not Recovered/Not Resolved]
  - Off label use [Unknown]
  - Asthenia [Not Recovered/Not Resolved]
  - Multiple sclerosis [Not Recovered/Not Resolved]

NARRATIVE: CASE EVENT DATE: 20210701
